FAERS Safety Report 15856681 (Version 1)
Quarter: 2019Q1

REPORT INFORMATION
  Report Type: Spontaneous
  Country: TR (occurrence: TR)
  Receive Date: 20190123
  Receipt Date: 20190123
  Transmission Date: 20190417
  Serious: Yes (Other)
  Sender: FDA-Public Use
  Company Number: TR-SCIEGEN PHARMACEUTICALS INC-2019SCILIT00013

PATIENT
  Age: 33 Year
  Sex: Female

DRUGS (6)
  1. EPOETIN BETA [Concomitant]
     Active Substance: ERYTHROPOIETIN
     Indication: RENAL FAILURE
     Dosage: 100 MCG/MONTH
     Route: 065
  2. ACETYLSALICYLIC ACID [Concomitant]
     Active Substance: ASPIRIN
     Indication: RENAL FAILURE
     Dosage: 300 MG, QD
     Route: 065
  3. CARNITINE [Concomitant]
     Active Substance: CARNITINE
     Indication: RENAL FAILURE
     Dosage: 3 G/WEEK
     Route: 065
  4. ATORVASTATIN CALCIUM. [Suspect]
     Active Substance: ATORVASTATIN CALCIUM
     Indication: HYPERTENSION
     Dosage: 80 MG, QD
     Route: 048
  5. CALCIUM ACETATE. [Concomitant]
     Active Substance: CALCIUM ACETATE
     Indication: RENAL FAILURE
     Dosage: 750 MG, QD
     Route: 065
  6. PARICALCITOL. [Concomitant]
     Active Substance: PARICALCITOL
     Indication: RENAL FAILURE
     Dosage: 15 MCG/WEEK
     Route: 065

REACTIONS (1)
  - Abortion spontaneous [Recovered/Resolved]
